FAERS Safety Report 23486242 (Version 1)
Quarter: 2024Q1

REPORT INFORMATION
  Report Type: Spontaneous
  Country: US (occurrence: US)
  Receive Date: 20240206
  Receipt Date: 20240206
  Transmission Date: 20240410
  Serious: Yes (Other)
  Sender: FDA-Public Use
  Company Number: US-AMGEN-USASP2024019148

PATIENT
  Age: 69 Year
  Sex: Female

DRUGS (5)
  1. REPATHA [Suspect]
     Active Substance: EVOLOCUMAB
     Indication: Cerebral artery stenosis
     Dosage: 140 MILLIGRAM, Q2WK
     Route: 058
     Dates: start: 2023
  2. REPATHA [Suspect]
     Active Substance: EVOLOCUMAB
     Indication: Prophylaxis
     Dosage: 140 MILLIGRAM, Q2WK
     Route: 058
     Dates: start: 20240125
  3. REPATHA [Suspect]
     Active Substance: EVOLOCUMAB
     Dosage: 140 MILLIGRAM, Q2WK
     Route: 058
  4. METFORMIN [Concomitant]
     Active Substance: METFORMIN HYDROCHLORIDE
     Indication: Diabetes mellitus
     Dosage: 500 MILLIGRAM, BID
     Route: 058
  5. METFORMIN [Concomitant]
     Active Substance: METFORMIN HYDROCHLORIDE
     Route: 058

REACTIONS (6)
  - Cerebral artery occlusion [Unknown]
  - Movement disorder [Unknown]
  - Device difficult to use [Unknown]
  - Injection site pain [Unknown]
  - Fatigue [Unknown]
  - Drug dose omission by device [Unknown]

NARRATIVE: CASE EVENT DATE: 20240125
